FAERS Safety Report 20199308 (Version 1)
Quarter: 2021Q4

REPORT INFORMATION
  Report Type: Spontaneous
  Country: US (occurrence: US)
  Receive Date: 20211217
  Receipt Date: 20211217
  Transmission Date: 20220303
  Serious: No
  Sender: FDA-Public Use
  Company Number: US-PFIZER INC-202101800642

PATIENT
  Age: 78 Year
  Sex: Female

DRUGS (2)
  1. PREGABALIN [Suspect]
     Active Substance: PREGABALIN
     Dosage: UNK
  2. TIZANIDINE [Concomitant]
     Active Substance: TIZANIDINE
     Indication: Nerve compression
     Dosage: UNK

REACTIONS (1)
  - Illness [Unknown]
